FAERS Safety Report 7004078-0 (Version None)
Quarter: 2010Q3

REPORT INFORMATION
  Report Type: 
  Country: None (occurrence: None)
  Receive Date: 20100920
  Receipt Date: 20100202
  Transmission Date: 20110219
  Serious: No
  Sender: FDA-Public Use
  Company Number: US-WYE-H13383510

PATIENT
  Sex: Female
  Weight: 90.8 kg

DRUGS (2)
  1. PRISTIQ [Suspect]
     Indication: DEPRESSION
     Route: 048
     Dates: start: 20100125
  2. VYVANSE [Concomitant]

REACTIONS (2)
  - DIARRHOEA [None]
  - DRUG EFFECT DECREASED [None]
